FAERS Safety Report 6043659-8 (Version None)
Quarter: 2009Q1

REPORT INFORMATION
  Report Type: 
  Country: None (occurrence: None)
  Receive Date: 20090120
  Receipt Date: 20090106
  Transmission Date: 20090719
  Serious: Yes (Other)
  Sender: FDA-Public Use
  Company Number: EG-BRISTOL-MYERS SQUIBB COMPANY-14461784

PATIENT
  Age: 39 Year
  Sex: Female
  Weight: 80 kg

DRUGS (1)
  1. COAPROVEL [Suspect]
     Indication: HYPERTENSION
     Dosage: 1 DOSAGEFORM = 1 UNIT. STRENGTH 300/12.5
     Route: 048
     Dates: start: 20071204, end: 20080727

REACTIONS (2)
  - ABORTION SPONTANEOUS [None]
  - PREGNANCY [None]
